FAERS Safety Report 6855951-5 (Version None)
Quarter: 2010Q3

REPORT INFORMATION
  Report Type: 
  Country: None (occurrence: None)
  Receive Date: 20100716
  Receipt Date: 20100716
  Transmission Date: 20110219
  Serious: Yes (Death)
  Sender: FDA-Public Use
  Company Number: None

PATIENT
  Sex: Male
  Weight: 61.9614 kg

DRUGS (7)
  1. TIMOZOLOMIDE [Suspect]
     Indication: GLIOSARCOMA
     Dosage: 75 MG/M2 DAILY PO
     Route: 048
     Dates: start: 20100419, end: 20100528
  2. PACLITAXEL POLIGLUMEX [Suspect]
     Indication: GLIOSARCOMA
     Dosage: 40 MG/M2 WKLY X 6 IV
     Route: 042
     Dates: start: 20100419
  3. PACLITAXEL POLIGLUMEX [Suspect]
     Indication: GLIOSARCOMA
     Dosage: 40 MG/M2 WKLY X 6 IV
     Route: 042
     Dates: start: 20100426
  4. PACLITAXEL POLIGLUMEX [Suspect]
     Indication: GLIOSARCOMA
     Dosage: 40 MG/M2 WKLY X 6 IV
     Route: 042
     Dates: start: 20100503
  5. PACLITAXEL POLIGLUMEX [Suspect]
     Indication: GLIOSARCOMA
     Dosage: 40 MG/M2 WKLY X 6 IV
     Route: 042
     Dates: start: 20100510
  6. PACLITAXEL POLIGLUMEX [Suspect]
     Indication: GLIOSARCOMA
     Dosage: 40 MG/M2 WKLY X 6 IV
     Route: 042
     Dates: start: 20100517
  7. PACLITAXEL POLIGLUMEX [Suspect]
     Indication: GLIOSARCOMA
     Dosage: 40 MG/M2 WKLY X 6 IV
     Route: 042
     Dates: start: 20100524

REACTIONS (2)
  - IDIOPATHIC THROMBOCYTOPENIC PURPURA [None]
  - MYELOMA RECURRENCE [None]
